FAERS Safety Report 12955930 (Version 3)
Quarter: 2017Q2

REPORT INFORMATION
  Report Type: Spontaneous
  Country: JP (occurrence: JP)
  Receive Date: 20161118
  Receipt Date: 20170628
  Transmission Date: 20170830
  Serious: Yes (Hospitalization, Other)
  Sender: FDA-Public Use
  Company Number: JP-GLAXOSMITHKLINE-JP2016JPN167707

PATIENT
  Age: 54 Year
  Sex: Female
  Weight: 48 kg

DRUGS (5)
  1. LENDEM [Concomitant]
     Dosage: UNK
  2. MEDIPEACE [Concomitant]
     Active Substance: ETIZOLAM
     Dosage: UNK
  3. SELBEX [Concomitant]
     Active Substance: TEPRENONE
     Dosage: UNK
  4. LIMAS [Concomitant]
     Active Substance: LITHIUM CARBONATE
     Dosage: UNK
  5. LAMICTAL [Suspect]
     Active Substance: LAMOTRIGINE
     Indication: DEPRESSION
     Dosage: UNK
     Route: 048

REACTIONS (27)
  - Generalised erythema [Unknown]
  - Lymphadenopathy [Unknown]
  - Skin exfoliation [Unknown]
  - Cerebellar ataxia [Unknown]
  - Ocular hyperaemia [Unknown]
  - Skin erosion [Recovered/Resolved]
  - Blister [Unknown]
  - Urinary incontinence [Unknown]
  - Tremor [Unknown]
  - Nikolsky^s sign [Recovered/Resolved]
  - Headache [Unknown]
  - Arthropod sting [Unknown]
  - Drug eruption [Recovered/Resolved]
  - Conjunctival erosion [Recovered/Resolved]
  - Rash erythematous [Recovered/Resolved]
  - Effusion [Unknown]
  - Stevens-Johnson syndrome [Recovered/Resolved]
  - Spinocerebellar disorder [Unknown]
  - Intermittent claudication [Not Recovered/Not Resolved]
  - Blood glucose abnormal [Unknown]
  - Pyrexia [Recovered/Resolved]
  - Decreased appetite [Unknown]
  - Hepatic function abnormal [Unknown]
  - Disseminated intravascular coagulation [Unknown]
  - Lip erosion [Recovered/Resolved]
  - Erythema of eyelid [Unknown]
  - Asthenia [Unknown]

NARRATIVE: CASE EVENT DATE: 201112
